FAERS Safety Report 10064550 (Version 1)
Quarter: 2014Q2

REPORT INFORMATION
  Report Type: Spontaneous
  Country: JP (occurrence: JP)
  Receive Date: 20140408
  Receipt Date: 20140408
  Transmission Date: 20141212
  Serious: Yes (Other)
  Sender: FDA-Public Use
  Company Number: JP-MYLANLABS-2014S1007424

PATIENT
  Age: 65 Year
  Sex: Female

DRUGS (2)
  1. MOGAMULIZUMAB [Suspect]
     Indication: ADULT T-CELL LYMPHOMA/LEUKAEMIA RECURRENT
     Route: 041
  2. CARBOPLATIN [Suspect]
     Indication: ADULT T-CELL LYMPHOMA/LEUKAEMIA RECURRENT
     Dosage: 50 MG
     Route: 038
     Dates: start: 200708

REACTIONS (1)
  - Hepatitis B [Recovering/Resolving]
